FAERS Safety Report 23091130 (Version 1)
Quarter: 2023Q4

REPORT INFORMATION
  Report Type: Spontaneous
  Country: GB (occurrence: GB)
  Receive Date: 20231020
  Receipt Date: 20231020
  Transmission Date: 20240110
  Serious: Yes (Disabling)
  Sender: FDA-Public Use
  Company Number: None

PATIENT
  Age: 29 Year
  Sex: Male
  Weight: 98 kg

DRUGS (5)
  1. MONTELUKAST [Suspect]
     Active Substance: MONTELUKAST SODIUM
     Indication: Product used for unknown indication
     Dosage: 10 MILLIGRAM DAILY; AT NIGHT, UNIT DOSE: 10MG
     Route: 065
     Dates: start: 20210316
  2. FEXOFENADINE [Concomitant]
     Active Substance: FEXOFENADINE HYDROCHLORIDE
     Indication: Asthma
     Dosage: 1 DOSAGE FORMS DAILY; UNIT DOSE: 1DF, FREQUENCY: ONCE DAILY, DURATION: 557 DAYS
     Dates: start: 20220317, end: 20230925
  3. ALBUTEROL [Concomitant]
     Active Substance: ALBUTEROL
     Indication: Product used for unknown indication
     Dosage: AS PREVIOUSLY ADVISED, DURATION: 28 DAYS
     Dates: start: 20230907, end: 20231005
  4. SERETIDE [Concomitant]
     Active Substance: FLUTICASONE PROPIONATE\SALMETEROL XINAFOATE
     Indication: Product used for unknown indication
     Dosage: 4 DOSAGE FORMS DAILY; WITH SPACER, UNIT DOSE: 2 DF, FREQUENCY: TWICE DAILY
     Route: 055
     Dates: start: 20230629
  5. VENTOLIN [Concomitant]
     Active Substance: ALBUTEROL SULFATE
     Indication: Product used for unknown indication
     Dosage: EMERGENCY SUPPLY
     Dates: start: 20230629

REACTIONS (2)
  - Visual impairment [Recovered/Resolved]
  - Blindness transient [Unknown]
